FAERS Safety Report 15654178 (Version 1)
Quarter: 2018Q4

REPORT INFORMATION
  Report Type: Spontaneous
  Country: ES (occurrence: ES)
  Receive Date: 20181125
  Receipt Date: 20181125
  Transmission Date: 20190205
  Serious: Yes (Death, Hospitalization, Other)
  Sender: FDA-Public Use
  Company Number: ES-BRISTOL-MYERS SQUIBB COMPANY-BMS-2018-110624

PATIENT
  Age: 65 Year
  Sex: Male

DRUGS (1)
  1. NIVOLUMAB [Suspect]
     Active Substance: NIVOLUMAB
     Indication: PRODUCT USED FOR UNKNOWN INDICATION
     Dosage: UNK
     Route: 065
     Dates: start: 20171221, end: 20180615

REACTIONS (6)
  - Colitis [Unknown]
  - Malignant neoplasm progression [Unknown]
  - Metabolic acidosis [Unknown]
  - Death [Fatal]
  - Acute kidney injury [Unknown]
  - Toxicity to various agents [Unknown]
